FAERS Safety Report 9393371 (Version 1)
Quarter: 2013Q3

REPORT INFORMATION
  Report Type: Report from Study
  Country: US (occurrence: US)
  Receive Date: 20130710
  Receipt Date: 20130710
  Transmission Date: 20140515
  Serious: Yes (Hospitalization)
  Sender: FDA-Public Use
  Company Number: US-BAYER-2013-074526

PATIENT
  Age: 64 Year
  Sex: Female

DRUGS (2)
  1. STIVARGA [Suspect]
     Indication: RECTAL CANCER
     Dosage: DAILY DOSE 160 MG
     Dates: start: 201305
  2. STIVARGA [Suspect]
     Indication: HEPATIC CANCER
     Dosage: 120 MG, (AM X 21 DAYS) QD
     Route: 048
     Dates: start: 20130622

REACTIONS (12)
  - Malaise [None]
  - Rash generalised [None]
  - Glossodynia [None]
  - Lip pain [None]
  - Dry skin [None]
  - Neuropathy peripheral [None]
  - Hyperaesthesia [None]
  - Dysphagia [None]
  - Eating disorder [None]
  - Increased upper airway secretion [None]
  - Pruritus generalised [None]
  - Off label use [None]
